FAERS Safety Report 11752658 (Version 2)
Quarter: 2015Q4

REPORT INFORMATION
  Report Type: Report from Study
  Country: JP (occurrence: JP)
  Receive Date: 20151119
  Receipt Date: 20151126
  Transmission Date: 20160304
  Serious: Yes (Hospitalization)
  Sender: FDA-Public Use
  Company Number: JP-ROCHE-1662954

PATIENT
  Age: 65 Year
  Sex: Female
  Weight: 53.3 kg

DRUGS (17)
  1. HIRUDOID OINTMENT [Concomitant]
     Indication: DRY SKIN
     Dosage: FOR TON
     Route: 061
     Dates: start: 20150812
  2. OBINUTUZUMAB [Suspect]
     Active Substance: OBINUTUZUMAB
     Indication: B-CELL LYMPHOMA
     Dosage: MOST RECENT DOSE WAS GIVEN ON 04/NOV/2015
     Route: 042
     Dates: start: 20150729
  3. CYCLOPHOSPHAMIDE. [Suspect]
     Active Substance: CYCLOPHOSPHAMIDE
     Indication: B-CELL LYMPHOMA
     Dosage: MOST RECENT DOSE WAS GIVEN ON 04/NOV/2015
     Route: 042
     Dates: start: 20150730
  4. REBAMIPIDE [Concomitant]
     Active Substance: REBAMIPIDE
     Indication: PROPHYLAXIS
     Route: 048
     Dates: start: 20151011
  5. PREDONINE [Suspect]
     Active Substance: PREDNISOLONE\PREDNISOLONE ACETATE\PREDNISOLONE SODIUM SUCCINATE
     Indication: B-CELL LYMPHOMA
     Dosage: MOST RECENT DOSE WAS GIVEN ON 08/NOV/2015
     Route: 065
     Dates: start: 20150729
  6. BAKTAR [Concomitant]
     Active Substance: SULFAMETHOXAZOLE\TRIMETHOPRIM
     Indication: PROPHYLAXIS
     Route: 048
     Dates: start: 20150730
  7. LYRICA [Concomitant]
     Active Substance: PREGABALIN
     Route: 048
     Dates: start: 20151009
  8. VINCRISTINE SULFATE. [Suspect]
     Active Substance: VINCRISTINE SULFATE
     Indication: B-CELL LYMPHOMA
     Dosage: MOST RECENT DOSE WAS GIVEN ON 04/NOV/2015
     Route: 042
     Dates: start: 20150730
  9. MAGNESIUM OXIDE. [Concomitant]
     Active Substance: MAGNESIUM OXIDE
     Indication: PROPHYLAXIS
     Dosage: FOR TON
     Route: 048
     Dates: start: 20150730
  10. LOXOPROFEN [Concomitant]
     Active Substance: LOXOPROFEN
     Route: 048
     Dates: start: 20151009
  11. MOHRUS TAPE [Concomitant]
     Active Substance: KETOPROFEN
     Indication: TUMOUR PAIN
     Dosage: FOR TON
     Route: 061
     Dates: start: 20150803
  12. HACHIAZULE [Concomitant]
     Indication: PROPHYLAXIS
     Dosage: FOR TON
     Route: 049
     Dates: start: 20151011
  13. DOXORUBICIN HYDROCHLORIDE. [Suspect]
     Active Substance: DOXORUBICIN HYDROCHLORIDE
     Indication: B-CELL LYMPHOMA
     Dosage: MOST RECENT DOSE WAS GIVEN ON 04/NOV/2015
     Route: 042
     Dates: start: 20150730
  14. TRAMCET [Concomitant]
     Active Substance: ACETAMINOPHEN\TRAMADOL
     Route: 048
     Dates: start: 20151015
  15. PANTETHINE [Concomitant]
     Active Substance: PANTETHINE
     Indication: PROPHYLAXIS
     Dosage: FOR TON
     Route: 048
     Dates: start: 20150730
  16. VICCLOX [Concomitant]
     Active Substance: ACYCLOVIR SODIUM
     Route: 048
     Dates: start: 20151022
  17. FAMOTIDINE. [Concomitant]
     Active Substance: FAMOTIDINE
     Indication: PROPHYLAXIS
     Route: 048
     Dates: start: 20150729

REACTIONS (1)
  - Gastroenteritis [Recovering/Resolving]

NARRATIVE: CASE EVENT DATE: 20151112
